FAERS Safety Report 15126598 (Version 3)
Quarter: 2018Q3

REPORT INFORMATION
  Report Type: Spontaneous
  Country: US (occurrence: US)
  Receive Date: 20180710
  Receipt Date: 20180829
  Transmission Date: 20181010
  Serious: Yes (Other)
  Sender: FDA-Public Use
  Company Number: US-ALLERGAN-1834591US

PATIENT
  Age: 61 Year
  Sex: Female

DRUGS (3)
  1. LINZESS [Suspect]
     Active Substance: LINACLOTIDE
     Indication: CONSTIPATION
     Dosage: 72 ?G, QD
     Route: 065
     Dates: start: 201807
  2. TRAZODONE [Concomitant]
     Active Substance: TRAZODONE HYDROCHLORIDE
     Indication: SLEEP DISORDER
     Route: 065
  3. ALPRAZOLAM. [Concomitant]
     Active Substance: ALPRAZOLAM
     Indication: ANXIETY DISORDER
     Dosage: UNK
     Route: 065

REACTIONS (11)
  - Nephrolithiasis [Not Recovered/Not Resolved]
  - Melaena [Not Recovered/Not Resolved]
  - Anal incontinence [Unknown]
  - Abdominal pain lower [Unknown]
  - Flatulence [Not Recovered/Not Resolved]
  - Faeces hard [Unknown]
  - Diarrhoea [Unknown]
  - Drug ineffective [Unknown]
  - Abdominal pain [Unknown]
  - Abdominal distension [Unknown]
  - Off label use [Unknown]

NARRATIVE: CASE EVENT DATE: 201807
